FAERS Safety Report 21334154 (Version 1)
Quarter: 2022Q3

REPORT INFORMATION
  Report Type: Spontaneous
  Country: US (occurrence: None)
  Receive Date: 20220913
  Receipt Date: 20220913
  Transmission Date: 20221027
  Serious: Yes (Death)
  Sender: FDA-Public Use
  Company Number: None

PATIENT
  Age: 76 Year
  Sex: Female

DRUGS (2)
  1. REVLIMID [Suspect]
     Active Substance: LENALIDOMIDE
     Indication: Plasma cell myeloma
     Dosage: OTHER FREQUENCY : 2 DAYS ON, 1 DAY O;?
     Route: 048
     Dates: start: 20210216, end: 20220630
  2. ENTECAVIR [Suspect]
     Active Substance: ENTECAVIR

REACTIONS (1)
  - Disease complication [None]

NARRATIVE: CASE EVENT DATE: 20220816
